FAERS Safety Report 8557837-7 (Version None)
Quarter: 2012Q3

REPORT INFORMATION
  Report Type: 
  Country: None (occurrence: None)
  Receive Date: 20120801
  Receipt Date: 20120724
  Transmission Date: 20120928
  Serious: Yes (Other)
  Sender: FDA-Public Use
  Company Number: US-GLAXOSMITHKLINE-A0986554A

PATIENT
  Age: 49 Year
  Sex: Male

DRUGS (5)
  1. ONE A DAY VITAMIN [Concomitant]
  2. ADVAIR [Suspect]
     Indication: EMPHYSEMA
     Dosage: 1PUFF TWICE PER DAY
     Route: 055
     Dates: start: 20040101, end: 20120501
  3. ZYRTEC [Concomitant]
  4. ADVAIR [Suspect]
     Dosage: 1PUFF TWICE PER DAY
     Route: 055
     Dates: start: 20120501
  5. ASCORBIC ACID [Concomitant]

REACTIONS (3)
  - COUGH [None]
  - LUNG NEOPLASM [None]
  - CONDITION AGGRAVATED [None]
